FAERS Safety Report 16483948 (Version 1)
Quarter: 2019Q3

REPORT INFORMATION
  Report Type: Spontaneous
  Country: US (occurrence: US)
  Receive Date: 20190625
  Receipt Date: 20190625
  Transmission Date: 20191004
  Serious: Yes (Hospitalization)
  Sender: FDA-Public Use
  Company Number: None

PATIENT
  Age: 56 Year
  Sex: Female
  Weight: 135 kg

DRUGS (1)
  1. DULOXETINE DR [Suspect]
     Active Substance: DULOXETINE
     Indication: DEPRESSION
     Dosage: ?          QUANTITY:3 CAPSULE(S);OTHER FREQUENCY:3 IN AM AND 1PM;?
     Route: 048

REACTIONS (8)
  - Loss of consciousness [None]
  - Paraesthesia [None]
  - Serotonin syndrome [None]
  - Exophthalmos [None]
  - Withdrawal syndrome [None]
  - Chills [None]
  - Aphasia [None]
  - Seizure [None]
